FAERS Safety Report 9644080 (Version 1)
Quarter: 2013Q4

REPORT INFORMATION
  Report Type: Spontaneous
  Country: PT (occurrence: PT)
  Receive Date: 20131024
  Receipt Date: 20131024
  Transmission Date: 20140711
  Serious: Yes (Other)
  Sender: FDA-Public Use
  Company Number: PHHY2013PT116525

PATIENT
  Age: 72 Year
  Sex: Male

DRUGS (3)
  1. ROPINIROLE [Suspect]
     Indication: PARKINSON^S DISEASE
  2. LEVODOPA+CARBIDOPA [Suspect]
     Indication: PARKINSON^S DISEASE
  3. ANTI-PARKINSON DRUGS [Suspect]

REACTIONS (2)
  - Jealous delusion [Recovered/Resolved]
  - Hypersexuality [Recovered/Resolved]
